FAERS Safety Report 12455703 (Version 1)
Quarter: 2016Q2

REPORT INFORMATION
  Report Type: Spontaneous
  Country: US (occurrence: None)
  Receive Date: 20160609
  Receipt Date: 20160609
  Transmission Date: 20160815
  Serious: Yes (Life-Threatening, Hospitalization)
  Sender: FDA-Public Use
  Company Number: None

PATIENT
  Age: 60 Year
  Sex: Male
  Weight: 76.4 kg

DRUGS (1)
  1. LINEZOLID. [Suspect]
     Active Substance: LINEZOLID
     Indication: PERITONITIS BACTERIAL
     Route: 048
     Dates: start: 20151125, end: 20151209

REACTIONS (5)
  - Blood creatinine increased [None]
  - Nausea [None]
  - Vomiting [None]
  - Blood bilirubin increased [None]
  - Blood lactic acid increased [None]

NARRATIVE: CASE EVENT DATE: 20151208
